FAERS Safety Report 5646417-9 (Version None)
Quarter: 2008Q1

REPORT INFORMATION
  Report Type: 
  Country: None (occurrence: None)
  Receive Date: 20080228
  Receipt Date: 20070412
  Transmission Date: 20080703
  Serious: Yes (Life-Threatening, Hospitalization)
  Sender: FDA-Public Use
  Company Number: FRPFM-E-20070051

PATIENT
  Age: 66 Year
  Sex: Male

DRUGS (11)
  1. NAVELBINE [Suspect]
     Indication: SQUAMOUS CELL CARCINOMA
     Dosage: 41.7 MG UNK IV
     Route: 042
     Dates: start: 20070221, end: 20070228
  2. CISPLATIN [Suspect]
     Indication: SQUAMOUS CELL CARCINOMA
     Dosage: 133 MG  IV
     Route: 042
     Dates: start: 20070221, end: 20070221
  3. ROCEPHIN [Concomitant]
  4. TAHOR [Concomitant]
  5. CORTICOIDS [Concomitant]
  6. KYTRIL [Concomitant]
  7. SOLUPRED [Concomitant]
  8. FER [Concomitant]
  9. ERYTHROPOIETINE [Concomitant]
  10. CERETIDE [Concomitant]
  11. VOGALENE [Concomitant]

REACTIONS (5)
  - ABDOMINAL PAIN UPPER [None]
  - COLITIS [None]
  - MELAENA [None]
  - NEUTROPENIA [None]
  - PANCYTOPENIA [None]
